FAERS Safety Report 13795570 (Version 3)
Quarter: 2019Q1

REPORT INFORMATION
  Report Type: Spontaneous
  Country: US (occurrence: US)
  Receive Date: 20170726
  Receipt Date: 20190308
  Transmission Date: 20190417
  Serious: Yes (Other)
  Sender: FDA-Public Use
  Company Number: US-LUNDBECK-DKLU2030050

PATIENT
  Sex: Female

DRUGS (1)
  1. NORTHERA [Suspect]
     Active Substance: DROXIDOPA
     Indication: ORTHOSTATIC HYPOTENSION
     Route: 048
     Dates: start: 2016

REACTIONS (2)
  - Drug ineffective [Unknown]
  - Cardiac pacemaker insertion [Recovered/Resolved]
